FAERS Safety Report 9161897 (Version 1)
Quarter: 2013Q1

REPORT INFORMATION
  Report Type: Spontaneous
  Country: FR (occurrence: None)
  Receive Date: 20130225
  Receipt Date: 20130225
  Transmission Date: 20140127
  Serious: Yes (Other)
  Sender: FDA-Public Use
  Company Number: 2013P1002451

PATIENT
  Sex: Male

DRUGS (5)
  1. HYDROCORTISONE [Suspect]
     Route: 042
  2. HYDROCORTISONE [Suspect]
     Route: 042
  3. HYDROCORTISONE [Suspect]
     Route: 042
  4. FLUDROCORTISONE [Suspect]
     Route: 048
  5. PHENYLEPHRINE [Suspect]
     Route: 042

REACTIONS (3)
  - Hyperhidrosis [None]
  - Bradycardia [None]
  - Potentiating drug interaction [None]
